FAERS Safety Report 17330636 (Version 1)
Quarter: 2020Q3

REPORT INFORMATION
  Report Type: Other
  Country: AT (occurrence: AT)
  Receive Date: 20200127
  Receipt Date: 20200127
  Transmission Date: 20201104
  Serious: Yes (Death, Hospitalization, Other)
  Sender: FDA-Public Use
  Company Number: AT-US-PROVELL PHARMACEUTICALS LLC-E2B_90051002

PATIENT
  Age: 80 Year
  Sex: Female

DRUGS (53)
  1. THEOPHYLLINE [Interacting]
     Active Substance: THEOPHYLLINE ANHYDROUS
     Indication: CHRONIC OBSTRUCTIVE PULMONARY DISEASE
  2. SERTRALINE [Suspect]
     Active Substance: SERTRALINE HYDROCHLORIDE
     Indication: PANIC ATTACK
  3. DIOSMIN [Suspect]
     Active Substance: DIOSMIN
     Indication: PERIPHERAL VENOUS DISEASE
     Dosage: AT PATIENTS INSISTENCE
  4. OXYGEN. [Interacting]
     Active Substance: OXYGEN
     Indication: PERIPHERAL VENOUS DISEASE
  5. DICLOFENAC [Interacting]
     Active Substance: DICLOFENAC
  6. DULOXETINE HYDROCHLORIDE. [Interacting]
     Active Substance: DULOXETINE HYDROCHLORIDE
     Indication: PAIN
  7. METAMIZOLE [Suspect]
     Active Substance: METAMIZOLE
     Indication: PRODUCT USED FOR UNKNOWN INDICATION
     Dosage: INTRAVENOUS
  8. SPIRIVA [Interacting]
     Active Substance: TIOTROPIUM BROMIDE MONOHYDRATE
     Indication: CHRONIC OBSTRUCTIVE PULMONARY DISEASE
     Dosage: PUFF (1 DOSAGE), START DATE: 23 NOV 2015
  9. SALMETEROL [Interacting]
     Active Substance: SALMETEROL
     Indication: CHRONIC OBSTRUCTIVE PULMONARY DISEASE
     Dosage: TWO DOSAGE FORMS, TWO PUFFS IN THE MORNING AND TWO PUFFS AT NIGHT
     Route: 055
  10. OMEPRAZOLE. [Interacting]
     Active Substance: OMEPRAZOLE
     Indication: GASTRITIS
  11. OXYGEN. [Interacting]
     Active Substance: OXYGEN
     Indication: HYPOXIA
     Dosage: 2 LITRE PER MINUTE CONTINUOUSLY
  12. OXYGEN. [Interacting]
     Active Substance: OXYGEN
     Indication: CHRONIC OBSTRUCTIVE PULMONARY DISEASE
  13. DICLOFENAC [Interacting]
     Active Substance: DICLOFENAC
     Indication: PAIN
     Dosage: 75 MG, MAX 2*1
  14. PIPERACILLIN/TAZOBACTAM [Concomitant]
     Active Substance: PIPERACILLIN SODIUM\TAZOBACTAM SODIUM
     Indication: PRODUCT USED FOR UNKNOWN INDICATION
  15. FUROSEMIDE. [Concomitant]
     Active Substance: FUROSEMIDE
     Indication: DIURETIC THERAPY
  16. PREDNISONE. [Interacting]
     Active Substance: PREDNISONE
     Indication: CHRONIC OBSTRUCTIVE PULMONARY DISEASE
  17. LEVOTHYROXINE SODIUM. [Interacting]
     Active Substance: LEVOTHYROXINE SODIUM
     Dosage: HALF DOSE ONCE IN THE MORNING
  18. ALPRAZOLAM. [Interacting]
     Active Substance: ALPRAZOLAM
     Indication: DYSPNOEA
     Dosage: IN TWO DIVIDED DOSES, ONE AT MORNING AND ONE AT NIGHT
  19. LISALGIL [Interacting]
     Active Substance: METAMIZOLE SODIUM
     Indication: PRODUCT USED FOR UNKNOWN INDICATION
     Route: 042
  20. ATORVASTATIN [Interacting]
     Active Substance: ATORVASTATIN
     Indication: HYPERCHOLESTEROLAEMIA
     Dosage: SUPERFLUOUS IN HINDSIGHT
  21. DULOXETINE HYDROCHLORIDE. [Interacting]
     Active Substance: DULOXETINE HYDROCHLORIDE
  22. BENSERAZIDE [Suspect]
     Active Substance: BENSERAZIDE
     Indication: RESTLESS LEGS SYNDROME
  23. PRAMIPEXOLE HYDROCHLORIDE [Interacting]
     Active Substance: PRAMIPEXOLE DIHYDROCHLORIDE
     Indication: RESTLESS LEGS SYNDROME
  24. SERTRALINE [Suspect]
     Active Substance: SERTRALINE HYDROCHLORIDE
     Indication: DEPRESSION
  25. HYDROMORPHONE HYDROCHLORIDE. [Suspect]
     Active Substance: HYDROMORPHONE HYDROCHLORIDE
     Indication: PAIN
     Dosage: 4 MG, AM (ONCE IN THE MORNING)
  26. OMEPRAZOLE. [Interacting]
     Active Substance: OMEPRAZOLE
  27. ACETYLSALICYLIC ACID [Interacting]
     Active Substance: ASPIRIN
     Indication: CORONARY ARTERY DISEASE
  28. BENSERAZIDE [Suspect]
     Active Substance: BENSERAZIDE
     Indication: HYPOTHYROIDISM
  29. ALPRAZOLAM. [Interacting]
     Active Substance: ALPRAZOLAM
     Indication: FEAR
  30. LEVODOPA [Interacting]
     Active Substance: LEVODOPA
     Indication: RESTLESS LEGS SYNDROME
  31. GABAPENTIN. [Suspect]
     Active Substance: GABAPENTIN
     Indication: PAIN
  32. TRAMADOL HYDROCHLORIDE. [Interacting]
     Active Substance: TRAMADOL HYDROCHLORIDE
     Indication: PAIN
  33. ACETAZOLAMIDE. [Suspect]
     Active Substance: ACETAZOLAMIDE
     Indication: HYPERCAPNIA
     Dosage: START DATE: 23 NOV 2015
  34. VITAMIN D                          /00107901/ [Interacting]
     Active Substance: ERGOCALCIFEROL
     Indication: VITAMIN D DEFICIENCY
  35. METHYLPREDNISOLONE. [Interacting]
     Active Substance: METHYLPREDNISOLONE
     Indication: PRODUCT USED FOR UNKNOWN INDICATION
     Route: 042
  36. BISOPROLOL [Suspect]
     Active Substance: BISOPROLOL
     Dosage: 3 MG, DRUG INTERVAL DOSAGE UNIT NUMBER 1 DAY
  37. PREDNISONE. [Interacting]
     Active Substance: PREDNISONE
  38. FLUTICASONE. [Interacting]
     Active Substance: FLUTICASONE
     Indication: CHRONIC OBSTRUCTIVE PULMONARY DISEASE
     Dosage: TWO PUFFS IN THE MORNING AND TWO PUFFS AT NIGHT, START DATE: 23 NOV 2015
     Route: 055
  39. FENOTEROL [Interacting]
     Active Substance: FENOTEROL
     Indication: CHRONIC OBSTRUCTIVE PULMONARY DISEASE
     Dosage: 0.05 MG, MAX 4*2 PUFFS AS NEEDED
     Route: 055
  40. ACETYLCYSTEINE. [Interacting]
     Active Substance: ACETYLCYSTEINE
     Indication: CHRONIC OBSTRUCTIVE PULMONARY DISEASE
     Dosage: 600 MILLIGRAM DAILY; ONCE IN THE MORNING; FOR 7 DAYS
  41. LEVOTHYROXINE SODIUM. [Interacting]
     Active Substance: LEVOTHYROXINE SODIUM
     Indication: HYPOTHYROIDISM
  42. RISPERIDONE. [Suspect]
     Active Substance: RISPERIDONE
     Indication: PRODUCT USED FOR UNKNOWN INDICATION
     Dosage: 1 MG, NOCTE (HALF DOSE AT NIGHT)
  43. CLOPIDOGREL BISULFATE. [Interacting]
     Active Substance: CLOPIDOGREL BISULFATE
     Indication: CORONARY ARTERY DISEASE
  44. IBANDRONIC ACID. [Interacting]
     Active Substance: IBANDRONIC ACID
     Indication: PERIPHERAL VENOUS DISEASE
  45. ALGELDRATE [Concomitant]
     Active Substance: ALGELDRATE
     Indication: GASTROOESOPHAGEAL REFLUX DISEASE
     Dosage: GEL, AS NEEDED, MAXIMUM 2X1
  46. BISOPROLOL [Suspect]
     Active Substance: BISOPROLOL
     Indication: CORONARY ARTERY DISEASE
     Dosage: IN TWO DIVIDED DOSES
  47. DULOXETINE HYDROCHLORIDE. [Interacting]
     Active Substance: DULOXETINE HYDROCHLORIDE
     Indication: DEPRESSION
  48. ACETAZOLAMIDE. [Suspect]
     Active Substance: ACETAZOLAMIDE
     Indication: ALKALOSIS
  49. IBANDRONIC ACID. [Interacting]
     Active Substance: IBANDRONIC ACID
     Indication: OSTEOPOROSIS
     Dosage: EVERY 3 MONTHS
  50. HESPERIDIN [Concomitant]
     Active Substance: HESPERIDIN
     Indication: PERIPHERAL VENOUS DISEASE
     Dosage: AT PATIENTS INSISTENCE
  51. DIPHENHYDRAMINE. [Concomitant]
     Active Substance: DIPHENHYDRAMINE
     Indication: ANTIALLERGIC THERAPY
  52. IPRATROPIUM [Concomitant]
     Active Substance: IPRATROPIUM
     Indication: CHRONIC OBSTRUCTIVE PULMONARY DISEASE
     Dosage: PUFFS AS NEEDED IN CASE OF DYSPNOEA; MAXIMUM 4X2
  53. MORPHINE HYDROCHLORIDE [Concomitant]
     Active Substance: MORPHINE HYDROCHLORIDE
     Indication: PRODUCT USED FOR UNKNOWN INDICATION

REACTIONS (19)
  - Acute respiratory failure [Fatal]
  - Pain [Fatal]
  - Off label use [Fatal]
  - Chronic obstructive pulmonary disease [Unknown]
  - Urinary tract infection [Fatal]
  - Clostridium difficile colitis [Fatal]
  - Erysipelas [Fatal]
  - Prescribed underdose [Unknown]
  - Lung disorder [Fatal]
  - Back pain [Fatal]
  - Hypercapnia [Fatal]
  - Arthralgia [Fatal]
  - Somnolence [Fatal]
  - Delirium [Fatal]
  - Urinary tract infection [Unknown]
  - Acute myocardial infarction [Fatal]
  - Chronic obstructive pulmonary disease [Fatal]
  - Death [Fatal]
  - Drug interaction [Fatal]

NARRATIVE: CASE EVENT DATE: 201510
